FAERS Safety Report 16783640 (Version 1)
Quarter: 2019Q3

REPORT INFORMATION
  Report Type: Spontaneous
  Country: US (occurrence: US)
  Receive Date: 20190908
  Receipt Date: 20190908
  Transmission Date: 20191005
  Serious: Yes (Other)
  Sender: FDA-Public Use
  Company Number: US-TESARO-2019-TSO03088-US

PATIENT
  Sex: Female
  Weight: 56.24 kg

DRUGS (1)
  1. ZEJULA [Suspect]
     Active Substance: NIRAPARIB
     Indication: PRODUCT USED FOR UNKNOWN INDICATION
     Dosage: 300 MG, UNK

REACTIONS (4)
  - Sleep disorder [Unknown]
  - Myocardial infarction [Unknown]
  - Gait inability [Unknown]
  - Palpitations [Unknown]
